FAERS Safety Report 10389545 (Version 1)
Quarter: 2014Q3

REPORT INFORMATION
  Report Type: Spontaneous
  Country: US (occurrence: None)
  Receive Date: 20140812
  Receipt Date: 20140812
  Transmission Date: 20150326
  Serious: Yes (Other)
  Sender: FDA-Public Use
  Company Number: AUR-APL-2014-08620

PATIENT
  Sex: Male

DRUGS (2)
  1. ROBITUSSIN COUGH SUGAR FREE DM (DEXTROMETHOPHRAN HYDROBROMIDE, GUAFENESIN) [Concomitant]
  2. CLARITHROMYCIN. [Suspect]
     Active Substance: CLARITHROMYCIN
     Indication: PNEUMONIA
     Dates: start: 2014, end: 201407

REACTIONS (2)
  - Respiratory tract congestion [None]
  - Drug prescribing error [None]

NARRATIVE: CASE EVENT DATE: 2014
